FAERS Safety Report 25276829 (Version 1)
Quarter: 2025Q2

REPORT INFORMATION
  Report Type: Other
  Country: US (occurrence: US)
  Receive Date: 20250507
  Receipt Date: 20250507
  Transmission Date: 20250716
  Serious: No
  Sender: LUPIN
  Company Number: US-LUPIN PHARMACEUTICALS INC.-2025-03728

PATIENT

DRUGS (1)
  1. LEVOTHYROXINE SODIUM [Suspect]
     Active Substance: LEVOTHYROXINE SODIUM
     Indication: Product used for unknown indication
     Route: 065

REACTIONS (6)
  - Diarrhoea [Unknown]
  - Headache [Unknown]
  - Product quality issue [Unknown]
  - Dyspnoea [Unknown]
  - Peripheral swelling [Unknown]
  - Weight abnormal [Unknown]
